FAERS Safety Report 20076499 (Version 2)
Quarter: 2022Q1

REPORT INFORMATION
  Report Type: Spontaneous
  Country: US (occurrence: US)
  Receive Date: 20211116
  Receipt Date: 20220224
  Transmission Date: 20220423
  Serious: Yes (Other)
  Sender: FDA-Public Use
  Company Number: US-JNJFOC-20211130608

PATIENT
  Age: 13 Year
  Sex: Male

DRUGS (6)
  1. RISPERDAL [Suspect]
     Active Substance: RISPERIDONE
     Indication: Product used for unknown indication
     Dosage: AT BEDTIME
     Route: 048
     Dates: end: 20121210
  2. RISPERDAL [Suspect]
     Active Substance: RISPERIDONE
     Dosage: EVERY MORNING
     Route: 048
  3. RISPERDAL [Suspect]
     Active Substance: RISPERIDONE
     Dosage: 1 TABLET BY MOUTH EVERY MORNING
     Route: 048
     Dates: end: 20130219
  4. RISPERDAL [Suspect]
     Active Substance: RISPERIDONE
     Dosage: TAKE 1 TABLET BY MOUTH DAILY AT EVERY MORNING
     Route: 048
     Dates: start: 20121108, end: 20130107
  5. RISPERDAL [Suspect]
     Active Substance: RISPERIDONE
     Dosage: TAKE 1 TABLET BY MOUTH DAILY AT BEDTIME
     Route: 048
     Dates: start: 20121108, end: 20130107
  6. RISPERIDONE [Suspect]
     Active Substance: RISPERIDONE
     Indication: Product used for unknown indication
     Route: 048

REACTIONS (2)
  - Hyperprolactinaemia [Unknown]
  - Gynaecomastia [Unknown]

NARRATIVE: CASE EVENT DATE: 20121210
